FAERS Safety Report 4417284-6 (Version None)
Quarter: 2004Q3

REPORT INFORMATION
  Report Type: 
  Country: None (occurrence: None)
  Receive Date: 20040806
  Receipt Date: 20040802
  Transmission Date: 20050211
  Serious: Yes (Hospitalization)
  Sender: FDA-Public Use
  Company Number: 2004014612

PATIENT
  Age: 44 Year
  Sex: Female
  Weight: 79 kg

DRUGS (4)
  1. VOLMAC [Suspect]
     Dosage: 4MG SINGLE DOSE
     Route: 048
     Dates: start: 20040802, end: 20040802
  2. DYSMENALGIT [Suspect]
     Dosage: 250MG SINGLE DOSE
     Route: 048
     Dates: start: 20040802, end: 20040802
  3. ISOCILLIN [Suspect]
     Dosage: 1.2MEGU SINGLE DOSE
     Route: 048
     Dates: start: 20040802, end: 20040802
  4. DIMENHYDRINATE [Suspect]
     Dosage: 50MG SINGLE DOSE
     Route: 048
     Dates: start: 20040802, end: 20040802

REACTIONS (4)
  - INTENTIONAL OVERDOSE [None]
  - SOMNOLENCE [None]
  - SUICIDE ATTEMPT [None]
  - TACHYCARDIA [None]
